FAERS Safety Report 8110240 (Version 2)
Quarter: 2015Q1

REPORT INFORMATION
  Report Type: Spontaneous
  Country: JP (occurrence: None)
  Receive Date: 20110817
  Receipt Date: 20150202
  Transmission Date: 20150721
  Serious: Yes (Other)
  Sender: FDA-Public Use
  Company Number: 2010JP004052

PATIENT
  Age: 18 Year
  Sex: Male
  Weight: 53 kg

DRUGS (11)
  1. VORICONAZOLE. [Suspect]
     Active Substance: VORICONAZOLE
     Indication: ANTIFUNGAL PROPHYLAXIS
     Dosage: 200 MG, TWICE DAILY, INTRAVENOUS
     Route: 042
  2. LANSOPRAZOLE. [Suspect]
     Active Substance: LANSOPRAZOLE
     Indication: PROPHYLAXIS
     Dosage: 60 MG, /D, IV NOS
     Route: 042
  3. TACROLIMUS (TACROLIMUS) [Suspect]
     Active Substance: TACROLIMUS
     Indication: PROPHYLAXIS AGAINST TRANSPLANT REJECTION
     Route: 041
  4. LENOGRASTIM (LENOGRASTIM) FORMULATION [Concomitant]
  5. MEROPENEM (MEROPENEM) FORMULATION [Concomitant]
  6. ACYCLOVIR (ACICLOVIR) FORMULATION [Concomitant]
  7. VANCOMYCIN (VANCOMYCIN) FORMULATION [Concomitant]
  8. URSODEOXYCHOLIC ACID (URSODEXYCHOLIC ACID) FORMULATION ??? [Concomitant]
  9. DOPAMINE HYDROCHLORIDE (DOPAMINE HYDROCHLORIDE) FORMULATION ??? [Concomitant]
  10. CEFEPIME (CEFEPIME) FORMULATION [Concomitant]
  11. METHOTREXATE (METHOTREXATE) FORMULATION [Concomitant]

REACTIONS (8)
  - Disease recurrence [None]
  - Diarrhoea [None]
  - Drug level decreased [None]
  - Lymphoma [None]
  - Inhibitory drug interaction [None]
  - Acute graft versus host disease [None]
  - Drug ineffective [None]
  - Disease progression [None]
